FAERS Safety Report 5089788-7 (Version None)
Quarter: 2006Q3

REPORT INFORMATION
  Report Type: 
  Country: None (occurrence: None)
  Receive Date: 20060828
  Receipt Date: 20060823
  Transmission Date: 20061208
  Serious: Yes (Death)
  Sender: FDA-Public Use
  Company Number: PHFR2006GB02623

PATIENT

DRUGS (2)
  1. GLICLAZIDE [Concomitant]
     Indication: DIABETES MELLITUS
     Route: 048
  2. CLOZAPINE [Suspect]
     Route: 048
     Dates: start: 20020501, end: 20040126

REACTIONS (2)
  - CONGESTIVE CARDIOMYOPATHY [None]
  - VENTRICULAR FAILURE [None]
